FAERS Safety Report 22330624 (Version 1)
Quarter: 2023Q2

REPORT INFORMATION
  Report Type: Spontaneous
  Country: JP (occurrence: JP)
  Receive Date: 20230517
  Receipt Date: 20230517
  Transmission Date: 20230722
  Serious: Yes (Hospitalization, Other)
  Sender: FDA-Public Use
  Company Number: JP-TAKEDA-2023TJP005759

PATIENT
  Age: 8 Decade
  Sex: Male

DRUGS (1)
  1. VECTIBIX [Suspect]
     Active Substance: PANITUMUMAB
     Indication: Colon cancer
     Dosage: 400 MILLIGRAM, Q2WEEKS
     Route: 042

REACTIONS (2)
  - Interstitial lung disease [Not Recovered/Not Resolved]
  - Nephrotic syndrome [Not Recovered/Not Resolved]
